FAERS Safety Report 22222389 (Version 2)
Quarter: 2023Q2

REPORT INFORMATION
  Report Type: Spontaneous
  Country: FR (occurrence: FR)
  Receive Date: 20230418
  Receipt Date: 20230606
  Transmission Date: 20230721
  Serious: Yes (Other)
  Sender: FDA-Public Use
  Company Number: None

PATIENT

DRUGS (3)
  1. ATOVAQUONE [Suspect]
     Active Substance: ATOVAQUONE
     Indication: Pneumocystis jirovecii pneumonia
     Dosage: 10 ML, QD
     Route: 048
     Dates: start: 20230321, end: 20230326
  2. METHOTREXATE [Interacting]
     Active Substance: METHOTREXATE
     Indication: Arthralgia
     Dosage: 10 MG, WE
     Route: 058
     Dates: start: 20230323, end: 20230326
  3. PIPERACILLIN SODIUM\TAZOBACTAM SODIUM [Interacting]
     Active Substance: PIPERACILLIN SODIUM\TAZOBACTAM SODIUM
     Indication: Pneumonia
     Dosage: UNK UNK, BID, 12.5 ML/H 2X/DAY
     Route: 042
     Dates: start: 20230317, end: 20230324

REACTIONS (2)
  - Pancytopenia [Not Recovered/Not Resolved]
  - Drug interaction [Unknown]

NARRATIVE: CASE EVENT DATE: 20230325
